FAERS Safety Report 6401989-1 (Version None)
Quarter: 2009Q4

REPORT INFORMATION
  Report Type: 
  Country: None (occurrence: None)
  Receive Date: 20091015
  Receipt Date: 20091013
  Transmission Date: 20100525
  Serious: Yes (Hospitalization)
  Sender: FDA-Public Use
  Company Number: Z0001979A

PATIENT
  Sex: Female
  Weight: 63 kg

DRUGS (1)
  1. CHLORAMBUCIL [Suspect]
     Route: 048
     Dates: start: 20090708

REACTIONS (1)
  - FEBRILE NEUTROPENIA [None]
